FAERS Safety Report 6274118-5 (Version None)
Quarter: 2009Q3

REPORT INFORMATION
  Report Type: 
  Country: None (occurrence: None)
  Receive Date: 20090720
  Receipt Date: 20090711
  Transmission Date: 20100115
  Serious: Yes (Other)
  Sender: FDA-Public Use
  Company Number: PHHY2009SE28737

PATIENT
  Sex: Female

DRUGS (4)
  1. VOLTAREN [Suspect]
     Indication: NEURALGIA
     Dosage: 50 MG, UNK
     Route: 054
  2. CYMBALTA [Interacting]
     Indication: DEPRESSION
     Dosage: 60 MG, UNK
  3. CYMBALTA [Interacting]
     Indication: NEURALGIA
  4. TRYPTIZOL [Interacting]
     Indication: NEURALGIA
     Dosage: 20 MG, UNK

REACTIONS (7)
  - ANXIETY [None]
  - BLOOD PRESSURE DECREASED [None]
  - DISORIENTATION [None]
  - DIZZINESS [None]
  - DRUG INTERACTION [None]
  - NAUSEA [None]
  - PANIC ATTACK [None]
